FAERS Safety Report 17214646 (Version 1)
Quarter: 2019Q4

REPORT INFORMATION
  Report Type: Other
  Country: MT (occurrence: MT)
  Receive Date: 20191230
  Receipt Date: 20191230
  Transmission Date: 20200122
  Serious: Yes (Hospitalization, Other)
  Sender: FDA-Public Use
  Company Number: MT-NEOPHARMA INC-000230

PATIENT
  Age: 80 Year
  Sex: Female

DRUGS (5)
  1. WARFARIN [Concomitant]
     Active Substance: WARFARIN
     Indication: PRODUCT USED FOR UNKNOWN INDICATION
  2. AMOXICILLIN. [Suspect]
     Active Substance: AMOXICILLIN
     Indication: HELICOBACTER INFECTION
     Dosage: 1 G TWICE DAILY FOR 14 DAYS
  3. DIGOXIN. [Suspect]
     Active Substance: DIGOXIN
     Indication: HEART RATE ABNORMAL
     Dosage: 0.125 MG DAILY
  4. CLARITHROMYCIN/CLARITHROMYCIN LACTOBIONATE [Suspect]
     Active Substance: CLARITHROMYCIN LACTOBIONATE
     Indication: HELICOBACTER INFECTION
     Dosage: 500 MG TWICE DAILY FOR 14 DAYS
  5. OMEPRAZOLE. [Suspect]
     Active Substance: OMEPRAZOLE
     Indication: HELICOBACTER INFECTION
     Dosage: 20 MG TWICE DAILY (INCREASED FROM HER PREVIOUS OMEPRAZOLE DOSE OF 20MG DAILY)

REACTIONS (6)
  - Electrocardiogram ST segment depression [Unknown]
  - Ventricular tachycardia [Unknown]
  - Bradycardia [Unknown]
  - Supraventricular tachycardia [Unknown]
  - Drug interaction [Unknown]
  - Toxicity to various agents [Unknown]
